FAERS Safety Report 6957298-5 (Version None)
Quarter: 2010Q3

REPORT INFORMATION
  Report Type: 
  Country: None (occurrence: None)
  Receive Date: 20100831
  Receipt Date: 20091216
  Transmission Date: 20110219
  Serious: No
  Sender: FDA-Public Use
  Company Number: US-BAYER-200943874NA

PATIENT
  Age: 18 Year
  Sex: Female

DRUGS (1)
  1. MIRENA [Suspect]
     Indication: CONTRACEPTION
     Route: 015
     Dates: start: 20090713

REACTIONS (5)
  - HEADACHE [None]
  - HYPOMENORRHOEA [None]
  - MENSTRUATION DELAYED [None]
  - PELVIC PAIN [None]
  - PROCEDURAL PAIN [None]
